FAERS Safety Report 14555224 (Version 2)
Quarter: 2018Q1

REPORT INFORMATION
  Report Type: Spontaneous
  Country: US (occurrence: US)
  Receive Date: 20180220
  Receipt Date: 20180326
  Transmission Date: 20180509
  Serious: Yes (Other)
  Sender: FDA-Public Use
  Company Number: US-ALLERGAN-1808932US

PATIENT
  Age: 54 Year
  Sex: Male

DRUGS (2)
  1. VIBERZI [Suspect]
     Active Substance: ELUXADOLINE
     Indication: DIARRHOEA
     Dosage: 100 MG, BID
     Route: 065
  2. VIBERZI [Suspect]
     Active Substance: ELUXADOLINE
     Dosage: 100 MG, QD
     Route: 065

REACTIONS (5)
  - Drug dose omission [Unknown]
  - Weight decreased [Unknown]
  - Disability [Unknown]
  - Cerebrovascular accident [Unknown]
  - Functional gastrointestinal disorder [Unknown]
